FAERS Safety Report 8316535-5 (Version None)
Quarter: 2012Q2

REPORT INFORMATION
  Report Type: 
  Country: None (occurrence: None)
  Receive Date: 20120427
  Receipt Date: 20120420
  Transmission Date: 20120825
  Serious: Yes (Other)
  Sender: FDA-Public Use
  Company Number: PHHY2012SE034193

PATIENT
  Sex: Female

DRUGS (2)
  1. SPIRIVA [Concomitant]
  2. ZOLEDRONOC ACID [Suspect]
     Indication: OSTEOPOROSIS
     Dosage: 5 MG, UNK
     Route: 042
     Dates: start: 20120411

REACTIONS (7)
  - SKIN WARM [None]
  - PAIN [None]
  - MUSCULAR WEAKNESS [None]
  - WRONG TECHNIQUE IN DRUG USAGE PROCESS [None]
  - HYPOKINESIA [None]
  - OEDEMA PERIPHERAL [None]
  - PYREXIA [None]
